FAERS Safety Report 7521635-3 (Version None)
Quarter: 2011Q2

REPORT INFORMATION
  Report Type: 
  Country: None (occurrence: None)
  Receive Date: 20110524
  Receipt Date: 20110407
  Transmission Date: 20111010
  Serious: Yes (Other)
  Sender: FDA-Public Use
  Company Number: 2011P1005869

PATIENT
  Sex: Female

DRUGS (9)
  1. DEXEDRINE [Suspect]
     Indication: PSYCHOMOTOR HYPERACTIVITY
     Dosage: 10 MG; BID; PO
     Route: 048
     Dates: end: 20110314
  2. DEXEDRINE [Suspect]
     Indication: DEPRESSION
     Dosage: 10 MG; BID; PO
     Route: 048
     Dates: end: 20110314
  3. DEXEDRINE [Suspect]
     Indication: ATTENTION DEFICIT/HYPERACTIVITY DISORDER
     Dosage: 10 MG; BID; PO
     Route: 048
     Dates: end: 20110314
  4. DEXEDRINE [Suspect]
     Indication: PSYCHOMOTOR HYPERACTIVITY
     Dosage: 10 MG; BID; PO
     Route: 048
     Dates: start: 20110301
  5. DEXEDRINE [Suspect]
     Indication: DEPRESSION
     Dosage: 10 MG; BID; PO
     Route: 048
     Dates: start: 20110301
  6. DEXEDRINE [Suspect]
     Indication: ATTENTION DEFICIT/HYPERACTIVITY DISORDER
     Dosage: 10 MG; BID; PO
     Route: 048
     Dates: start: 20110301
  7. VYVANSE [Suspect]
     Indication: DEPRESSION
     Dosage: 20 MG; QD
     Dates: start: 20110315, end: 20110301
  8. VYVANSE [Suspect]
     Indication: ATTENTION DEFICIT/HYPERACTIVITY DISORDER
     Dosage: 20 MG; QD
     Dates: start: 20110315, end: 20110301
  9. VYVANSE [Suspect]
     Indication: PSYCHOMOTOR HYPERACTIVITY
     Dosage: 20 MG; QD
     Dates: start: 20110315, end: 20110301

REACTIONS (6)
  - TREATMENT NONCOMPLIANCE [None]
  - LETHARGY [None]
  - DEPRESSION [None]
  - FEELING ABNORMAL [None]
  - CONDITION AGGRAVATED [None]
  - INFLUENZA LIKE ILLNESS [None]
